FAERS Safety Report 17334588 (Version 1)
Quarter: 2020Q1

REPORT INFORMATION
  Report Type: Spontaneous
  Country: US (occurrence: US)
  Receive Date: 20200128
  Receipt Date: 20200128
  Transmission Date: 20200409
  Serious: No
  Sender: FDA-Public Use
  Company Number: US-GE HEALTHCARE LIFE SCIENCES-2019CSU004091

PATIENT
  Age: 74 Year
  Sex: Female
  Weight: 68.03 kg

DRUGS (2)
  1. OMNIPAQUE [Suspect]
     Active Substance: IOHEXOL
     Indication: COMPUTERISED TOMOGRAM
     Dosage: 150 ML, SINGLE
     Route: 042
     Dates: start: 20190805, end: 20190805
  2. OMNIPAQUE [Suspect]
     Active Substance: IOHEXOL
     Indication: NEOPLASM MALIGNANT

REACTIONS (1)
  - Sneezing [Recovered/Resolved]

NARRATIVE: CASE EVENT DATE: 20190805
